FAERS Safety Report 15228318 (Version 1)
Quarter: 2018Q3

REPORT INFORMATION
  Report Type: Report from Study
  Country: ES (occurrence: ES)
  Receive Date: 20180801
  Receipt Date: 20180801
  Transmission Date: 20181010
  Serious: Yes (Hospitalization)
  Sender: FDA-Public Use
  Company Number: ES-TEVA-2018-ES-932100

PATIENT
  Sex: Male

DRUGS (2)
  1. LEVETIRACETAM. [Suspect]
     Active Substance: LEVETIRACETAM
     Dosage: 1000?500?1000 (DAILY DOSE 2500) TID
     Route: 065
     Dates: start: 201801
  2. LEVETIRACETAM. [Suspect]
     Active Substance: LEVETIRACETAM
     Indication: PRODUCT USED FOR UNKNOWN INDICATION
     Dosage: 1000?1000 (DAILY DOSE 2000), 2X/DAY (BID) UNK
     Route: 065

REACTIONS (9)
  - Mood altered [Unknown]
  - Eructation [Unknown]
  - Gastric disorder [Unknown]
  - Headache [Not Recovered/Not Resolved]
  - Off label use [Unknown]
  - Parosmia [Not Recovered/Not Resolved]
  - Epilepsy [Unknown]
  - Abnormal behaviour [Unknown]
  - Feeling abnormal [Not Recovered/Not Resolved]

NARRATIVE: CASE EVENT DATE: 20180105
